FAERS Safety Report 4297994-4 (Version None)
Quarter: 2004Q1

REPORT INFORMATION
  Report Type: 
  Country: None (occurrence: None)
  Receive Date: 20040218
  Receipt Date: 20011002
  Transmission Date: 20041129
  Serious: Yes (Other)
  Sender: FDA-Public Use
  Company Number: US-BRISTOL-MYERS SQUIBB COMPANY-11029238

PATIENT
  Sex: Female

DRUGS (9)
  1. STADOL [Suspect]
     Route: 045
  2. CHLORPHENIRAMINE MALEATE AND PSEUDOEPHEDRINE HCL [Concomitant]
  3. PHENERGAN VC W/ CODEINE [Concomitant]
  4. PROPACET 100 [Concomitant]
  5. ULTRAM [Concomitant]
  6. AMITRIPTYLINE [Concomitant]
  7. TERAZOL 7 [Concomitant]
  8. BUSPAR [Concomitant]
  9. HYCOTUSS [Concomitant]

REACTIONS (1)
  - DEPENDENCE [None]
